FAERS Safety Report 5692893-5 (Version None)
Quarter: 2008Q2

REPORT INFORMATION
  Report Type: 
  Country: None (occurrence: None)
  Receive Date: 20080326
  Receipt Date: 20071108
  Transmission Date: 20081010
  Serious: No
  Sender: FDA-Public Use
  Company Number: US-CVT-070181

PATIENT
  Age: 67 Year
  Sex: Female

DRUGS (13)
  1. RANEXA [Suspect]
     Indication: CHEST DISCOMFORT
     Dosage: 500 MG, BID, ORAL
     Route: 048
     Dates: start: 20071106
  2. PLAVIX [Concomitant]
  3. LEVOTHYROXINE/00068001/ (LEVOTHYROXINE) [Concomitant]
  4. ATENOLOL [Concomitant]
  5. OMEPRAZOLE [Concomitant]
  6. ISOSORBIDE (ISOSORBIDE) [Concomitant]
  7. CARTIA XT [Concomitant]
  8. ASPIRIN /00002701/ (ACETYLSALCYLIC ACID) [Concomitant]
  9. MULTIVITAMIN/00831701/ (VITAMINS NOS) [Concomitant]
  10. VYTORIN [Concomitant]
  11. FISH OIL (FISH OIL) [Concomitant]
  12. AMBIEN [Concomitant]
  13. NIASPAN [Concomitant]

REACTIONS (1)
  - INSOMNIA [None]
